FAERS Safety Report 15080680 (Version 2)
Quarter: 2018Q3

REPORT INFORMATION
  Report Type: Spontaneous
  Country: US (occurrence: US)
  Receive Date: 20180628
  Receipt Date: 20180712
  Transmission Date: 20181010
  Serious: Yes (Death, Life-Threatening, Hospitalization, Other)
  Sender: FDA-Public Use
  Company Number: US-BRISTOL-MYERS SQUIBB COMPANY-BMS-2018-059414

PATIENT
  Age: 75 Year
  Sex: Male

DRUGS (1)
  1. NIVOLUMAB [Suspect]
     Active Substance: NIVOLUMAB
     Indication: SQUAMOUS CELL CARCINOMA OF HEAD AND NECK
     Dosage: 3 MG/KG, UNK
     Route: 042

REACTIONS (7)
  - Myositis [Unknown]
  - Myasthenia gravis [Unknown]
  - Cardiac arrest [Unknown]
  - Tachycardia [Unknown]
  - Transaminases increased [Unknown]
  - Death [Fatal]
  - Acute respiratory failure [Unknown]
